FAERS Safety Report 5012047-5 (Version None)
Quarter: 2006Q2

REPORT INFORMATION
  Report Type: 
  Country: None (occurrence: None)
  Receive Date: 20060526
  Receipt Date: 20051228
  Transmission Date: 20061013
  Serious: Yes (Disabling)
  Sender: FDA-Public Use
  Company Number: FR-GLAXOSMITHKLINE-B0405122A

PATIENT
  Age: 62 Year
  Sex: Male

DRUGS (5)
  1. ALKERAN [Suspect]
     Indication: MULTIPLE MYELOMA
     Route: 048
  2. EPIVIR [Concomitant]
     Indication: HIV INFECTION
     Route: 048
  3. PREDNISONE TAB [Concomitant]
     Indication: MULTIPLE MYELOMA
     Route: 048
  4. ZERIT [Concomitant]
     Indication: HIV INFECTION
     Route: 048
  5. ARANESP [Concomitant]
     Dosage: 1UNIT WEEKLY
     Route: 058

REACTIONS (4)
  - CHEST X-RAY ABNORMAL [None]
  - DYSPNOEA [None]
  - PULMONARY FIBROSIS [None]
  - RALES [None]
